FAERS Safety Report 17699059 (Version 1)
Quarter: 2020Q2

REPORT INFORMATION
  Report Type: Report from Study
  Country: US (occurrence: US)
  Receive Date: 20200423
  Receipt Date: 20200423
  Transmission Date: 20200714
  Serious: Yes (Hospitalization, Other)
  Sender: FDA-Public Use
  Company Number: US-MYLANLABS-2020M1039167

PATIENT
  Age: 2 Year
  Sex: Male
  Weight: 9.8 kg

DRUGS (6)
  1. TEMSIROLIMUS. [Suspect]
     Active Substance: TEMSIROLIMUS
     Indication: EMBRYONAL RHABDOMYOSARCOMA
     Dosage: 0.5 MG/KG OVER 30-60 MINS ON DAYS 1, 8, AND 15 ON CYCLES 1-4 AND CYCLES 8-9
     Route: 042
     Dates: start: 20190923
  2. CAMPTOSAR [Suspect]
     Active Substance: IRINOTECAN HYDROCHLORIDE
     Indication: EMBRYONAL RHABDOMYOSARCOMA
     Dosage: 120 MG PER DOSING TABLE IV OVER 90 MIN ON DAYS 1-5 OF CYCLES 2, 4, 6,7 AND 9,
     Route: 042
     Dates: start: 20190923
  3. VINCRISTINE SULFATE. [Suspect]
     Active Substance: VINCRISTINE SULFATE
     Dosage: PER DOSING TABLE IV OVER 1 MIN OR INFUSION VIA MINIBAG ON DAY 1 OF CYCLES 5 AND 10, ON DAYS 1 AND,
     Route: 042
  4. DACTINOMYCIN [Suspect]
     Active Substance: DACTINOMYCIN
     Indication: EMBRYONAL RHABDOMYOSARCOMA
     Dosage: PER DOSING TABLE IV OVER 1-5 MIN ON DAY 1 OF CYCLES 1, 3, 5, 8 AND 10,
     Route: 042
     Dates: start: 20190923
  5. VINCRISTINE SULFATE. [Suspect]
     Active Substance: VINCRISTINE SULFATE
     Indication: EMBRYONAL RHABDOMYOSARCOMA
     Dosage: 1.48 MIG PER DOSING TABLE IV OVER 1 MINUTE OR INFUSION VIA MINIBAG ON DAYS 1, 8, AND 15 ON CYCLE
     Route: 042
     Dates: start: 20190923, end: 20200313
  6. CYCLOPHOSPHAMIDE. [Suspect]
     Active Substance: CYCLOPHOSPHAMIDE
     Indication: EMBRYONAL RHABDOMYOSARCOMA
     Dosage: PER DOSING TABLE IV OVER 60 MINON DAY 1 OF CYCLES 1, 3, 5,8 AND 10
     Route: 042
     Dates: start: 20190923

REACTIONS (3)
  - Acute kidney injury [Unknown]
  - Bladder spasm [Unknown]
  - Weight decreased [Unknown]

NARRATIVE: CASE EVENT DATE: 20200316
